FAERS Safety Report 14115716 (Version 2)
Quarter: 2018Q3

REPORT INFORMATION
  Report Type: Spontaneous
  Country: US (occurrence: US)
  Receive Date: 20171023
  Receipt Date: 20180924
  Transmission Date: 20181010
  Serious: No
  Sender: FDA-Public Use
  Company Number: US-ALLERGAN-1733208US

PATIENT
  Sex: Female

DRUGS (8)
  1. LINZESS [Suspect]
     Active Substance: LINACLOTIDE
     Dosage: 290 ?G, UNK
     Route: 048
     Dates: start: 20180625
  2. MIRALAX [Concomitant]
     Active Substance: POLYETHYLENE GLYCOL 3350
  3. LISINOPRIL. [Concomitant]
     Active Substance: LISINOPRIL
     Indication: MYOCARDIAL INFARCTION
  4. VITAMINS NOS [Concomitant]
     Active Substance: VITAMINS
  5. LINZESS [Suspect]
     Active Substance: LINACLOTIDE
     Indication: IRRITABLE BOWEL SYNDROME
     Dosage: 290 ?G, UNK
     Route: 048
  6. PLAVIX [Concomitant]
     Active Substance: CLOPIDOGREL BISULFATE
     Indication: MYOCARDIAL INFARCTION
  7. LISINOPRIL. [Concomitant]
     Active Substance: LISINOPRIL
     Indication: CARDIOVASCULAR DISORDER
  8. PLAVIX [Concomitant]
     Active Substance: CLOPIDOGREL BISULFATE
     Indication: CARDIOVASCULAR DISORDER

REACTIONS (4)
  - Off label use [Unknown]
  - Diarrhoea [Unknown]
  - Drug dose omission [Unknown]
  - Drug ineffective [Unknown]
